FAERS Safety Report 16914987 (Version 1)
Quarter: 2019Q4

REPORT INFORMATION
  Report Type: Spontaneous
  Country: DE (occurrence: DE)
  Receive Date: 20191014
  Receipt Date: 20191014
  Transmission Date: 20200122
  Serious: No
  Sender: FDA-Public Use
  Company Number: DE-TOLMAR, INC.-19DE000507

PATIENT
  Sex: Male

DRUGS (1)
  1. ELIGARD [Suspect]
     Active Substance: LEUPROLIDE ACETATE
     Indication: OCCUPATIONAL EXPOSURE TO PRODUCT
     Dosage: UNK
     Route: 065

REACTIONS (3)
  - Syringe issue [Unknown]
  - Occupational exposure to product [Unknown]
  - Intercepted medication error [None]
